FAERS Safety Report 6033005-8 (Version None)
Quarter: 2009Q1

REPORT INFORMATION
  Report Type: 
  Country: None (occurrence: None)
  Receive Date: 20090109
  Receipt Date: 20090105
  Transmission Date: 20090719
  Serious: Yes (Death, Other)
  Sender: FDA-Public Use
  Company Number: PL-ABBOTT-09P-129-0495720-00

PATIENT
  Age: 32 Year
  Sex: Female

DRUGS (3)
  1. MERIDIA [Suspect]
     Indication: OBESITY
  2. ADIPEX [Suspect]
     Indication: OBESITY
  3. ANTICAGULANTS [Concomitant]
     Indication: DRUG USE FOR UNKNOWN INDICATION

REACTIONS (4)
  - INFLUENZA [None]
  - LOSS OF CONSCIOUSNESS [None]
  - PAIN IN EXTREMITY [None]
  - PULMONARY EMBOLISM [None]
